FAERS Safety Report 25473021 (Version 1)
Quarter: 2025Q2

REPORT INFORMATION
  Report Type: Report from Study
  Country: CO (occurrence: CO)
  Receive Date: 20250624
  Receipt Date: 20250624
  Transmission Date: 20250716
  Serious: Yes (Hospitalization, Other)
  Sender: JOHNSON AND JOHNSON
  Company Number: CO-JNJFOC-20250325967

PATIENT
  Age: 41 Year
  Sex: Male
  Weight: 83 kg

DRUGS (1)
  1. SIMPONI [Suspect]
     Active Substance: GOLIMUMAB
     Indication: Ankylosing spondylitis
     Route: 058
     Dates: start: 20241117, end: 20250619

REACTIONS (2)
  - Thyroid operation [Not Recovered/Not Resolved]
  - Neoplasm malignant [Unknown]

NARRATIVE: CASE EVENT DATE: 20250307
